FAERS Safety Report 17176305 (Version 1)
Quarter: 2019Q4

REPORT INFORMATION
  Report Type: Spontaneous
  Country: GB (occurrence: GB)
  Receive Date: 20191219
  Receipt Date: 20191219
  Transmission Date: 20200122
  Serious: Yes (Hospitalization, Other)
  Sender: FDA-Public Use
  Company Number: GB-SUN PHARMACEUTICAL INDUSTRIES LTD-2019RR-231253

PATIENT
  Age: 55 Year
  Sex: Female

DRUGS (2)
  1. SERTRALINE [Suspect]
     Active Substance: SERTRALINE HYDROCHLORIDE
     Indication: MENOPAUSAL SYMPTOMS
     Dosage: 50 MILLIGRAM, DAILY
     Route: 065
     Dates: start: 20191108, end: 20191119
  2. RAMIPRIL. [Concomitant]
     Active Substance: RAMIPRIL
     Indication: HYPERTENSION
     Dosage: ()
     Route: 065

REACTIONS (5)
  - Diarrhoea [Unknown]
  - Hypotension [Unknown]
  - Acute kidney injury [Unknown]
  - Vomiting [Unknown]
  - Gastroenteritis [Recovered/Resolved]
